FAERS Safety Report 9269101 (Version 3)
Quarter: 2013Q3

REPORT INFORMATION
  Report Type: Spontaneous
  Country: SE (occurrence: SE)
  Receive Date: 20130503
  Receipt Date: 20130807
  Transmission Date: 20140515
  Serious: Yes (Death, Other)
  Sender: FDA-Public Use
  Company Number: SE-ROCHE-1220800

PATIENT
  Age: 60 Year
  Sex: Male

DRUGS (18)
  1. PEGASYS [Suspect]
     Indication: PRODUCT USED FOR UNKNOWN INDICATION
     Route: 058
     Dates: start: 20120518, end: 20121214
  2. COPEGUS [Suspect]
     Indication: PRODUCT USED FOR UNKNOWN INDICATION
     Route: 048
     Dates: start: 20120518, end: 20121217
  3. COPEGUS [Suspect]
     Dosage: DOSE REDUCED
     Route: 048
  4. INCIVO [Suspect]
     Indication: PRODUCT USED FOR UNKNOWN INDICATION
     Route: 048
     Dates: start: 20120518, end: 20120810
  5. IDEOS [Concomitant]
  6. ECALTA [Concomitant]
     Indication: SEPSIS
  7. VANCOCIN [Concomitant]
     Indication: INFECTION
  8. ROCALTROL [Concomitant]
     Route: 065
  9. OXYCONTIN [Concomitant]
  10. PANODIL [Concomitant]
  11. CITODON [Concomitant]
  12. TOREM [Concomitant]
     Route: 065
  13. PREDNISOLON [Concomitant]
     Route: 065
  14. ALLOPURINOL [Concomitant]
     Route: 065
  15. NATRIUMBIKARBONAT [Concomitant]
  16. LOSARTAN [Concomitant]
     Route: 065
  17. ARANESP [Concomitant]
     Indication: ANAEMIA
  18. TAVANIC [Concomitant]
     Indication: PNEUMONIA

REACTIONS (3)
  - Pancreatic disorder [Fatal]
  - Pancreatitis [Fatal]
  - Abdominal pain [Fatal]
